FAERS Safety Report 5918390-7 (Version None)
Quarter: 2008Q4

REPORT INFORMATION
  Report Type: 
  Country: None (occurrence: None)
  Receive Date: 20081015
  Receipt Date: 20081001
  Transmission Date: 20090506
  Serious: Yes (Hospitalization)
  Sender: FDA-Public Use
  Company Number: DE-BAYER-200827625GPV

PATIENT
  Age: 50 Year
  Sex: Male
  Weight: 100 kg

DRUGS (3)
  1. ASPIRIN [Suspect]
     Indication: TRANSIENT ISCHAEMIC ATTACK
     Dosage: TOTAL DAILY DOSE: 100 MG  UNIT DOSE: 100 MG
     Route: 048
     Dates: start: 20080103, end: 20080104
  2. ACYCLOVIR [Concomitant]
     Indication: ORAL HERPES
     Route: 061
     Dates: start: 19670101, end: 20080101
  3. DUOTRAV (TRAVOPROST/TIMOLOL) [Concomitant]
     Indication: GLAUCOMA
     Dosage: TOTAL DAILY DOSE: 2 GTT
     Route: 047
     Dates: start: 19960101, end: 20080201

REACTIONS (1)
  - AUTOIMMUNE THROMBOCYTOPENIA [None]
